FAERS Safety Report 12338777 (Version 7)
Quarter: 2017Q1

REPORT INFORMATION
  Report Type: Report from Study
  Country: JP (occurrence: JP)
  Receive Date: 20160505
  Receipt Date: 20170131
  Transmission Date: 20170428
  Serious: Yes (Life-Threatening, Hospitalization, Other)
  Sender: FDA-Public Use
  Company Number: PHJP2015JP020350

PATIENT
  Age: 67 Year
  Sex: Male
  Weight: 54.6 kg

DRUGS (11)
  1. ANTEBATE [Concomitant]
     Active Substance: BETAMETHASONE DIPROPIONATE
     Indication: PSORIASIS
     Dosage: Q.S.
     Route: 061
     Dates: start: 20150804
  2. PREDNISOLON [Concomitant]
     Active Substance: PREDNISOLONE
     Indication: DERMATITIS EXFOLIATIVE
     Dosage: 10 MG, UNK
     Route: 048
     Dates: start: 20150703, end: 20150825
  3. COSENTYX [Suspect]
     Active Substance: SECUKINUMAB
     Indication: PSORIASIS
     Dosage: 300 MG, QW
     Route: 058
     Dates: start: 20150804, end: 20150901
  4. OLOPATADINE [Concomitant]
     Active Substance: OLOPATADINE
     Indication: PSORIASIS
     Dosage: 10 MG, UNK
     Route: 048
     Dates: start: 20150804
  5. CICLOSPORIN [Concomitant]
     Active Substance: CYCLOSPORINE
     Indication: PSORIASIS
     Dosage: 50 MG, UNK
     Route: 048
     Dates: end: 20160728
  6. COSENTYX [Suspect]
     Active Substance: SECUKINUMAB
     Dosage: 300 MG, QMO
     Route: 058
     Dates: start: 20150929, end: 20150929
  7. OXAROL [Concomitant]
     Active Substance: MAXACALCITOL
     Indication: PSORIASIS
     Dosage: Q.S., UNK
     Route: 061
     Dates: start: 20150701
  8. PREDNISOLON [Concomitant]
     Active Substance: PREDNISOLONE
     Dosage: 7.5 MG, UNK
     Route: 048
     Dates: start: 20150826
  9. RABEPRAZOLE [Concomitant]
     Active Substance: RABEPRAZOLE
     Indication: PRODUCT USED FOR UNKNOWN INDICATION
     Dosage: 10 MG, UNK
     Route: 048
     Dates: start: 20150804
  10. ALLELOCK [Concomitant]
     Active Substance: OLOPATADINE HYDROCHLORIDE
     Indication: PSORIASIS
     Dosage: 10 MG, UNK
     Route: 048
     Dates: start: 20150804, end: 20151121
  11. CICLOSPORIN [Concomitant]
     Active Substance: CYCLOSPORINE
     Indication: DERMATITIS EXFOLIATIVE
     Dosage: 150 MG, UNK
     Route: 048
     Dates: start: 20151110

REACTIONS (4)
  - Myocardial infarction [Recovering/Resolving]
  - Pyrexia [Recovered/Resolved]
  - Cell marker increased [Recovered/Resolved]
  - Blood beta-D-glucan increased [Recovering/Resolving]

NARRATIVE: CASE EVENT DATE: 20150817
